FAERS Safety Report 6339751-0 (Version None)
Quarter: 2009Q3

REPORT INFORMATION
  Report Type: 
  Country: None (occurrence: None)
  Receive Date: 20090903
  Receipt Date: 20090825
  Transmission Date: 20100115
  Serious: Yes (Other)
  Sender: FDA-Public Use
  Company Number: FR-ELI_LILLY_AND_COMPANY-FR200906002669

PATIENT
  Age: 48 Year
  Sex: Female

DRUGS (8)
  1. ZYPREXA [Suspect]
     Indication: BIPOLAR DISORDER
     Dosage: 7.5 MG, DAILY (1/D)
     Route: 048
     Dates: start: 20081211, end: 20090319
  2. ZYPREXA [Suspect]
     Dosage: 10 MG, DAILY (1/D)
     Route: 048
     Dates: start: 20090320, end: 20090408
  3. ZYPREXA [Suspect]
     Dosage: 20 MG, DAILY (1/D)
     Route: 048
     Dates: start: 20090409, end: 20090813
  4. EFFEXOR [Concomitant]
     Indication: BIPOLAR DISORDER
     Dosage: 75 MG, 2/D
     Route: 048
     Dates: start: 20081204, end: 20081217
  5. EFFEXOR [Concomitant]
     Dosage: 75 MG, 3/D
     Route: 048
     Dates: start: 20081218, end: 20090701
  6. EFFEXOR [Concomitant]
     Dosage: 75 MG, 2/D
     Route: 048
     Dates: start: 20090702
  7. SERESTA [Concomitant]
     Indication: BIPOLAR DISORDER
     Dosage: 10 MG, 3/D
     Route: 048
     Dates: start: 20081204
  8. STILNOX [Concomitant]
     Indication: BIPOLAR DISORDER
     Dosage: 10 MG, DAILY (1/D)
     Route: 048
     Dates: start: 20081204

REACTIONS (6)
  - AMNESIA [None]
  - DISSOCIATIVE FUGUE [None]
  - DRUG INTERACTION [None]
  - PETIT MAL EPILEPSY [None]
  - RETROGRADE AMNESIA [None]
  - SOMNAMBULISM [None]
